FAERS Safety Report 25253093 (Version 1)
Quarter: 2025Q2

REPORT INFORMATION
  Report Type: Spontaneous
  Country: AU (occurrence: AU)
  Receive Date: 20250430
  Receipt Date: 20250430
  Transmission Date: 20250716
  Serious: Yes (Death)
  Sender: ORGANON
  Company Number: AU-ASPEN-AUS2025AU001750

PATIENT
  Age: 47 Year
  Sex: Female

DRUGS (8)
  1. MIRTAZAPINE [Suspect]
     Active Substance: MIRTAZAPINE
     Indication: Product used for unknown indication
  2. DIAZEPAM [Suspect]
     Active Substance: DIAZEPAM
     Indication: Mental disorder
  3. DULOXETINE HYDROCHLORIDE [Suspect]
     Active Substance: DULOXETINE HYDROCHLORIDE
     Indication: Mental disorder
  4. OXAZEPAM [Suspect]
     Active Substance: OXAZEPAM
     Indication: Mental disorder
  5. OXYCODONE [Suspect]
     Active Substance: OXYCODONE
     Indication: Product used for unknown indication
  6. TAPENTADOL [Suspect]
     Active Substance: TAPENTADOL
     Indication: Product used for unknown indication
  7. TEMAZEPAM [Suspect]
     Active Substance: TEMAZEPAM
     Indication: Product used for unknown indication
  8. VENLAFAXINE HYDROCHLORIDE [Suspect]
     Active Substance: VENLAFAXINE HYDROCHLORIDE
     Indication: Mental disorder

REACTIONS (1)
  - Toxicity to various agents [Fatal]
